FAERS Safety Report 4968115-7 (Version None)
Quarter: 2006Q2

REPORT INFORMATION
  Report Type: 
  Country: None (occurrence: None)
  Receive Date: 20060410
  Receipt Date: 20060329
  Transmission Date: 20061013
  Serious: Yes (Death)
  Sender: FDA-Public Use
  Company Number: IT-BRISTOL-MYERS SQUIBB COMPANY-13332242

PATIENT
  Age: 27 Year
  Sex: Male

DRUGS (4)
  1. ABILIFY [Suspect]
     Indication: SCHIZOPHRENIA, PARANOID TYPE
     Route: 048
     Dates: start: 20051001
  2. HALDOL [Concomitant]
  3. EN [Concomitant]
     Route: 030
     Dates: end: 20060301
  4. XANAX [Concomitant]
     Dates: end: 20060301

REACTIONS (3)
  - ANXIETY [None]
  - COMPLETED SUICIDE [None]
  - DELUSION [None]
